FAERS Safety Report 10086307 (Version 2)
Quarter: 2017Q2

REPORT INFORMATION
  Report Type: Spontaneous
  Country: US (occurrence: US)
  Receive Date: 20140418
  Receipt Date: 20170411
  Transmission Date: 20170829
  Serious: Yes (Congenital Anomaly, Other)
  Sender: FDA-Public Use
  Company Number: US-PFIZER INC-2014104276

PATIENT
  Sex: Male

DRUGS (24)
  1. ZOLOFT [Suspect]
     Active Substance: SERTRALINE HYDROCHLORIDE
     Indication: DEPRESSION
     Dosage: UNK
     Route: 064
     Dates: start: 20010920, end: 20021010
  2. ZOLOFT [Suspect]
     Active Substance: SERTRALINE HYDROCHLORIDE
     Indication: ANXIETY
  3. AMOXICILLIN. [Suspect]
     Active Substance: AMOXICILLIN
     Dosage: UNK
     Dates: start: 20030204
  4. TOPAMAX [Suspect]
     Active Substance: TOPIRAMATE
     Indication: ANXIETY
     Dosage: UNK
     Route: 064
  5. MAXALT [Suspect]
     Active Substance: RIZATRIPTAN BENZOATE
     Indication: MIGRAINE
     Dosage: UNK
     Route: 064
  6. AMITRIPTYLINE HYDROCHLORIDE. [Suspect]
     Active Substance: AMITRIPTYLINE HYDROCHLORIDE
     Dosage: UNK
     Route: 064
     Dates: start: 20011105, end: 20021114
  7. ERY-TAB [Suspect]
     Active Substance: ERYTHROMYCIN
     Dosage: UNK
     Route: 064
     Dates: start: 20010920, end: 20021114
  8. DOXEPIN HCL [Suspect]
     Active Substance: DOXEPIN HYDROCHLORIDE
     Dosage: UNK
     Route: 064
     Dates: start: 20020404, end: 20021114
  9. PRENATAL VITAMINS [Concomitant]
     Active Substance: VITAMINS
     Dosage: UNK
     Route: 064
  10. BACTRIM [Suspect]
     Active Substance: SULFAMETHOXAZOLE\TRIMETHOPRIM
     Dosage: UNK
     Route: 064
     Dates: start: 20021212
  11. PHENAZOPYRIDINE. [Suspect]
     Active Substance: PHENAZOPYRIDINE
     Dosage: UNK
     Route: 064
     Dates: start: 20021230
  12. ZITHROMAX [Suspect]
     Active Substance: AZITHROMYCIN DIHYDRATE
     Dosage: UNK
     Route: 064
     Dates: start: 20030226
  13. SPIRONOLACTONE. [Suspect]
     Active Substance: SPIRONOLACTONE
     Dosage: UNK
     Route: 064
     Dates: start: 20020617, end: 20021114
  14. PRIMACARE [Suspect]
     Active Substance: ALPHA-TOCOPHEROL ACETATE\BIOTIN\CALCIUM ASCORBATE\CALCIUM CARBONATE\CHOLECALCIFEROL\FOLIC ACID\LINOLEIC ACID\MAGNESIUM OXIDE\NIACINAMIDE\OMEGA-3 FATTY ACIDS\POTASSIUM IODIDE\PYRIDOXINE\RIBOFLAVIN\ZINC
     Dosage: UNK
     Route: 064
     Dates: start: 20021219
  15. ZYRTEC [Suspect]
     Active Substance: CETIRIZINE HYDROCHLORIDE
     Dosage: 10 MG, UNK
     Route: 064
     Dates: start: 20001116, end: 20030224
  16. TOPAMAX [Suspect]
     Active Substance: TOPIRAMATE
     Indication: MIGRAINE
     Dosage: UNK
     Route: 064
     Dates: start: 2001, end: 2002
  17. TOPAMAX [Suspect]
     Active Substance: TOPIRAMATE
     Indication: HEADACHE
     Dosage: UNK
     Route: 064
  18. IBUPROFEN. [Suspect]
     Active Substance: IBUPROFEN
     Dosage: 800 MG, UNK
     Route: 064
     Dates: start: 20020901
  19. AMOXICILLIN. [Suspect]
     Active Substance: AMOXICILLIN
     Indication: FURUNCLE
     Dosage: UNK
     Route: 064
     Dates: start: 20020518
  20. TOPAMAX [Suspect]
     Active Substance: TOPIRAMATE
     Indication: DEPRESSION
     Dosage: UNK
     Route: 064
  21. FERROUS SULFATE. [Concomitant]
     Active Substance: FERROUS SULFATE
     Dosage: UNK
     Route: 064
     Dates: start: 20030509
  22. IRON [Concomitant]
     Active Substance: IRON
     Dosage: UNK
     Route: 064
  23. HYDROXYZINE PAMOATE. [Suspect]
     Active Substance: HYDROXYZINE PAMOATE
     Dosage: UNK
     Route: 064
     Dates: start: 20030211, end: 20030606
  24. MECLIZINE [Suspect]
     Active Substance: MECLIZINE HYDROCHLORIDE
     Dosage: UNK
     Route: 064
     Dates: start: 20030204

REACTIONS (3)
  - Maternal exposure during pregnancy [Recovered/Resolved]
  - Aggression [Unknown]
  - Ear disorder [Unknown]
